FAERS Safety Report 18422400 (Version 1)
Quarter: 2020Q4

REPORT INFORMATION
  Report Type: Report from Study
  Country: IR (occurrence: IR)
  Receive Date: 20201023
  Receipt Date: 20201023
  Transmission Date: 20210114
  Serious: Yes (Other)
  Sender: FDA-Public Use
  Company Number: IR-GLAXOSMITHKLINE-IR2020GSK211403

PATIENT
  Age: 64 Year
  Sex: Female

DRUGS (6)
  1. TERBINAFINE. [Suspect]
     Active Substance: TERBINAFINE
     Dosage: TERBINAFINE OINTMENT (FOR 3 MONTHS)
  2. BETAMETHASONE DIPROPIONATE. [Suspect]
     Active Substance: BETAMETHASONE DIPROPIONATE
     Indication: TRICHOPHYTOSIS
     Dosage: UNK
  3. ITRACONAZOLE. [Suspect]
     Active Substance: ITRACONAZOLE
     Indication: TRICHOPHYTOSIS
     Dosage: 100 MG, 1D
  4. SERTACONAZOLE [Suspect]
     Active Substance: SERTACONAZOLE
     Indication: TRICHOPHYTOSIS
     Dosage: UNK
  5. FLUCONAZOLE. [Suspect]
     Active Substance: FLUCONAZOLE
     Indication: TRICHOPHYTOSIS
     Dosage: 150 MG, 1D
  6. TERBINAFINE. [Suspect]
     Active Substance: TERBINAFINE
     Indication: TRICHOPHYTOSIS
     Dosage: 250 MG, 1D

REACTIONS (3)
  - Pathogen resistance [Unknown]
  - Drug resistance [Unknown]
  - Drug ineffective [Unknown]
